FAERS Safety Report 24994976 (Version 5)
Quarter: 2025Q4

REPORT INFORMATION
  Report Type: Spontaneous
  Country: EU (occurrence: EU)
  Receive Date: 20250221
  Receipt Date: 20251126
  Transmission Date: 20260117
  Serious: Yes (Other)
  Sender: MYLAN
  Company Number: EU-JNJFOC-20250206467

PATIENT
  Age: 40 Year
  Sex: Female

DRUGS (9)
  1. REVLIMID [Suspect]
     Active Substance: LENALIDOMIDE
     Indication: Plasma cell myeloma
     Dosage: UNK, AS A PART OF DARATUMUMAB + LENALIDOMIDE + DEXAMETHASONE REGIMEN
  2. REVLIMID [Suspect]
     Active Substance: LENALIDOMIDE
     Indication: Xanthogranuloma
  3. REVLIMID [Suspect]
     Active Substance: LENALIDOMIDE
     Indication: Necrobiosis
  4. DARZALEX [Concomitant]
     Active Substance: DARATUMUMAB
     Indication: Plasma cell myeloma
     Dosage: UNK, AS A PART OF DARATUMUMAB + LENALIDOMIDE + DEXAMETHASONE REGIMEN
  5. DARZALEX [Concomitant]
     Active Substance: DARATUMUMAB
     Indication: Xanthogranuloma
  6. DARZALEX [Concomitant]
     Active Substance: DARATUMUMAB
     Indication: Necrobiosis
  7. DEXAMETHASONE [Concomitant]
     Active Substance: DEXAMETHASONE
     Indication: Plasma cell myeloma
     Dosage: UNK, AS A PART OF DARATUMUMAB + LENALIDOMIDE + DEXAMETHASONE REGIMEN
  8. DEXAMETHASONE [Concomitant]
     Active Substance: DEXAMETHASONE
     Indication: Xanthogranuloma
  9. DEXAMETHASONE [Concomitant]
     Active Substance: DEXAMETHASONE
     Indication: Necrobiosis

REACTIONS (3)
  - Thrombocytopenia [Not Recovered/Not Resolved]
  - Neutropenia [Unknown]
  - Gastrointestinal disorder [Unknown]
